FAERS Safety Report 11689060 (Version 4)
Quarter: 2016Q1

REPORT INFORMATION
  Report Type: Spontaneous
  Country: US (occurrence: US)
  Receive Date: 20151102
  Receipt Date: 20160223
  Transmission Date: 20160525
  Serious: Yes (Other)
  Sender: FDA-Public Use
  Company Number: PHEH2015US021319

PATIENT
  Age: 69 Year
  Sex: Female

DRUGS (3)
  1. ANTIVERT//MECLOZINE HYDROCHLORIDE [Concomitant]
     Indication: PRODUCT USED FOR UNKNOWN INDICATION
     Route: 065
  2. DIOVAN HCT [Suspect]
     Active Substance: HYDROCHLOROTHIAZIDE\VALSARTAN
     Indication: PRODUCT USED FOR UNKNOWN INDICATION
     Dosage: 1 DF, (160 VALS AND 12.5 HCTZ)
     Route: 065
  3. HYDROCHLOROTHIAZIDE,VALSARTAN [Suspect]
     Active Substance: HYDROCHLOROTHIAZIDE\VALSARTAN
     Indication: PRODUCT USED FOR UNKNOWN INDICATION
     Route: 065

REACTIONS (10)
  - Blood pressure systolic increased [Unknown]
  - Agitation [Unknown]
  - Mood altered [Unknown]
  - Headache [Unknown]
  - Palpitations [Unknown]
  - Inner ear disorder [Unknown]
  - Vertigo [Unknown]
  - Musculoskeletal pain [Unknown]
  - Dizziness [Unknown]
  - Pain in extremity [Unknown]
